FAERS Safety Report 5832776-0 (Version None)
Quarter: 2008Q3

REPORT INFORMATION
  Report Type: 
  Country: None (occurrence: None)
  Receive Date: 20080731
  Receipt Date: 20080722
  Transmission Date: 20090109
  Serious: Yes (Death)
  Sender: FDA-Public Use
  Company Number: 2008-00865

PATIENT
  Sex: 0

DRUGS (5)
  1. VELCADE [Suspect]
     Indication: MULTIPLE MYELOMA
     Dosage: 2.45 MG,  INTRAVENOUS;  2.5 MG,  INTRAVENOUS
     Route: 042
     Dates: start: 20060616, end: 20071105
  2. VELCADE [Suspect]
     Indication: MULTIPLE MYELOMA
     Dosage: 2.45 MG,  INTRAVENOUS;  2.5 MG,  INTRAVENOUS
     Route: 042
     Dates: start: 20071116, end: 20080124
  3. WARFARIN SODIUM [Suspect]
     Indication: DRUG USE FOR UNKNOWN INDICATION
  4. DEXAMETHASONE [Concomitant]
  5. PAMIDRONATE DISODIUM [Concomitant]

REACTIONS (1)
  - HAEMORRHAGE INTRACRANIAL [None]
